FAERS Safety Report 8977107 (Version 1)
Quarter: 2012Q4

REPORT INFORMATION
  Report Type: 
  Country: IT (occurrence: IT)
  Receive Date: 20121219
  Receipt Date: 20121219
  Transmission Date: 20130627
  Serious: No
  Sender: FDA-Public Use
  Company Number: PHHY2012IT116971

PATIENT
  Sex: Female

DRUGS (4)
  1. TASIGNA [Suspect]
     Dosage: 600 mg, daily
     Route: 048
     Dates: start: 20110914, end: 20120503
  2. TAPAZOLE [Concomitant]
     Dosage: 5 mg, UNK
     Route: 048
  3. LUCEN [Concomitant]
     Dosage: UNK
  4. TRIATEC [Concomitant]
     Dosage: 5 mg, UNK
     Route: 048

REACTIONS (3)
  - Rash [Recovered/Resolved]
  - Headache [Recovered/Resolved]
  - Arthralgia [Recovered/Resolved]
